FAERS Safety Report 7381769-3 (Version None)
Quarter: 2011Q1

REPORT INFORMATION
  Report Type: 
  Country: None (occurrence: None)
  Receive Date: 20110329
  Receipt Date: 20110317
  Transmission Date: 20110831
  Serious: Yes (Life-Threatening, Hospitalization, Other)
  Sender: FDA-Public Use
  Company Number: US-JNJFOC-20110307438

PATIENT
  Age: 28 Year
  Sex: Female

DRUGS (5)
  1. LIDOCAINE [Suspect]
     Indication: VASOCONSTRICTION
     Dosage: .5%
     Route: 050
  2. ORTHO EVRA [Concomitant]
     Indication: CONTRACEPTION
     Route: 062
  3. OXYMETAZOLINE HCL [Suspect]
     Indication: VASOCONSTRICTION
     Dosage: 16 TOTAL SPRAYS
     Route: 045
  4. ANESTHETICS [Suspect]
     Indication: ANAESTHESIA
     Route: 042
  5. EPINEPHRINE [Suspect]
     Indication: VASOCONSTRICTION
     Dosage: 1:200,000
     Route: 050

REACTIONS (2)
  - ACUTE PULMONARY OEDEMA [None]
  - OVERDOSE [None]
